FAERS Safety Report 10273476 (Version 1)
Quarter: 2014Q2

REPORT INFORMATION
  Report Type: Spontaneous
  Country: US (occurrence: None)
  Receive Date: 20140630
  Receipt Date: 20140630
  Transmission Date: 20141212
  Serious: No
  Sender: FDA-Public Use
  Company Number: None

PATIENT
  Age: 72 Year
  Sex: Female
  Weight: 74.84 kg

DRUGS (2)
  1. VERAPAMIL HCL [Suspect]
     Indication: MIGRAINE
     Route: 048
     Dates: start: 20090612, end: 20140612
  2. VERAPAMIL HCL [Suspect]
     Indication: HYPERTENSION
     Route: 048
     Dates: start: 20090612, end: 20140612

REACTIONS (3)
  - Balance disorder [None]
  - Headache [None]
  - Muscle spasms [None]
